FAERS Safety Report 7025634-X (Version None)
Quarter: 2010Q4

REPORT INFORMATION
  Report Type: 
  Country: None (occurrence: None)
  Receive Date: 20101004
  Receipt Date: 20100920
  Transmission Date: 20110411
  Serious: Yes (Hospitalization, Other)
  Sender: FDA-Public Use
  Company Number: US-RANBAXY-2010US-38231

PATIENT

DRUGS (4)
  1. METFORMIN HCL [Suspect]
     Indication: PRODUCT USED FOR UNKNOWN INDICATION
     Dosage: UNK, UNK
     Route: 048
     Dates: end: 20100720
  2. ISOPTIN [Suspect]
     Indication: PRODUCT USED FOR UNKNOWN INDICATION
     Route: 048
     Dates: end: 20100720
  3. TRIATEC [Suspect]
     Indication: PRODUCT USED FOR UNKNOWN INDICATION
     Route: 048
     Dates: end: 20100720
  4. INSULTARD [Suspect]
     Indication: PRODUCT USED FOR UNKNOWN INDICATION
     Route: 058
     Dates: end: 20100720

REACTIONS (7)
  - ALTERED STATE OF CONSCIOUSNESS [None]
  - ANAEMIA MACROCYTIC [None]
  - HYPOGLYCAEMIA [None]
  - LACTIC ACIDOSIS [None]
  - OVERDOSE [None]
  - RENAL FAILURE ACUTE [None]
  - VITAMIN B12 DEFICIENCY [None]
